FAERS Safety Report 23055577 (Version 1)
Quarter: 2023Q4

REPORT INFORMATION
  Report Type: Spontaneous
  Country: FR (occurrence: FR)
  Receive Date: 20231011
  Receipt Date: 20231011
  Transmission Date: 20240110
  Serious: Yes (Other)
  Sender: FDA-Public Use
  Company Number: None

PATIENT
  Age: 40 Year
  Sex: Female
  Weight: 105 kg

DRUGS (16)
  1. PROPOFOL [Suspect]
     Active Substance: PROPOFOL
     Indication: Sedation
     Route: 042
     Dates: start: 20220214, end: 20220222
  2. PROPOFOL [Suspect]
     Active Substance: PROPOFOL
     Route: 042
     Dates: start: 20220222, end: 20220223
  3. PROPOFOL [Suspect]
     Active Substance: PROPOFOL
     Route: 042
     Dates: start: 20220223, end: 20220308
  4. PROPOFOL [Suspect]
     Active Substance: PROPOFOL
     Dosage: MAXIMUM PER HOUR: 20MG ?INTERVAL BETWEEN TWO DOSES: 30 MIN
     Route: 042
     Dates: start: 20220214, end: 20220308
  5. PANPHARMA HEPARIN SODIUM [Concomitant]
     Indication: Thrombosis prophylaxis
     Route: 058
     Dates: start: 20220214, end: 20220301
  6. DOLIPRANE 500 mg capsule [Concomitant]
     Indication: Perioperative analgesia
     Route: 048
     Dates: start: 20220213, end: 20220214
  7. PRIMPERAN [Concomitant]
     Active Substance: METOCLOPRAMIDE HYDROCHLORIDE
     Indication: Nausea
     Dosage: 1 COMPRIM? 3X/JOUR SI NAUS?ES
     Route: 048
     Dates: start: 20220213, end: 20220214
  8. NOVORAPID [Concomitant]
     Active Substance: INSULIN ASPART
     Indication: Diabetes mellitus management
     Route: 058
     Dates: start: 20220214, end: 20220309
  9. NORADRENALINE MYLAN 2mg/ml WITHOUT SULPHITES, solution for solution fo [Concomitant]
     Indication: Haemodynamic instability
     Route: 042
     Dates: start: 20220214, end: 20220310
  10. ZAMUDOL L.P. 100 mg extended-release capsule [Concomitant]
     Indication: Perioperative analgesia
     Route: 048
     Dates: start: 20220213, end: 20220214
  11. ACTISKENAN 10 mg capsule [Concomitant]
     Indication: Perioperative analgesia
     Route: 048
     Dates: start: 20220213, end: 20220214
  12. ULTIVA 5 mg, powder for solution for injection or for infusion [Concomitant]
     Indication: Perioperative analgesia
     Route: 042
     Dates: start: 20220214, end: 20220308
  13. PANTOPRAZOLE SODIUM [Concomitant]
     Active Substance: PANTOPRAZOLE SODIUM
     Indication: Product used for unknown indication
     Route: 042
     Dates: start: 20220214, end: 20220222
  14. PANTOPRAZOLE SODIUM [Concomitant]
     Active Substance: PANTOPRAZOLE SODIUM
     Route: 042
     Dates: start: 20220222, end: 20220310
  15. FOLIC ACID [Concomitant]
     Active Substance: FOLIC ACID
     Indication: Folate deficiency
     Route: 048
     Dates: start: 20220214, end: 20220306
  16. OROZAMUDOL 50 mg orodispersible tablet [Concomitant]
     Indication: Perioperative analgesia
     Route: 048
     Dates: start: 20220213, end: 20220214

REACTIONS (1)
  - Hypertriglyceridaemia [Not Recovered/Not Resolved]

NARRATIVE: CASE EVENT DATE: 20220222
